FAERS Safety Report 10184605 (Version 1)
Quarter: 2014Q2

REPORT INFORMATION
  Report Type: Report from Study
  Country: US (occurrence: US)
  Receive Date: 20140521
  Receipt Date: 20140521
  Transmission Date: 20141212
  Serious: Yes (Hospitalization)
  Sender: FDA-Public Use
  Company Number: US-IPSEN BIOPHARMACEUTICALS, INC.-2014-2474

PATIENT
  Age: 62 Year
  Sex: Male
  Weight: 138 kg

DRUGS (8)
  1. SOMATULINE DEPOT INJECTION (90MG) [Suspect]
     Indication: ACROMEGALY
     Dosage: 90 MG
     Route: 058
     Dates: start: 2012
  2. MIRALAX [Concomitant]
     Indication: CONSTIPATION
     Dosage: NOT REPORTED
     Route: 065
  3. AMOLDIPINE [Concomitant]
     Indication: HYPERTENSION
     Dosage: NOT REPORTED
     Route: 065
  4. LOSARTAN K [Concomitant]
     Indication: HYPERTENSION
     Dosage: NOT REPORTED
     Route: 065
  5. GUANFACINE [Concomitant]
     Indication: HYPERTENSION
     Route: 065
  6. TERAZOSIN [Concomitant]
     Indication: PRODUCT USED FOR UNKNOWN INDICATION
     Dosage: NOT REPORTED
     Route: 065
  7. DEXILANT [Concomitant]
     Indication: PRODUCT USED FOR UNKNOWN INDICATION
     Dosage: NOT REPORTED
     Route: 065
  8. PANCREASE [Concomitant]
     Indication: PRODUCT USED FOR UNKNOWN INDICATION
     Dosage: NOT REPORTED
     Route: 065

REACTIONS (3)
  - Gastrointestinal haemorrhage [Unknown]
  - Cholelithiasis [Unknown]
  - Inappropriate schedule of drug administration [Unknown]
